FAERS Safety Report 25666333 (Version 3)
Quarter: 2025Q3

REPORT INFORMATION
  Report Type: Spontaneous
  Country: US (occurrence: US)
  Receive Date: 20250811
  Receipt Date: 20250822
  Transmission Date: 20251020
  Serious: No
  Sender: AMGEN
  Company Number: US-AMGEN-USASP2025156758

PATIENT
  Sex: Female

DRUGS (9)
  1. OTEZLA [Suspect]
     Active Substance: APREMILAST
     Indication: Psoriasis
     Route: 048
     Dates: start: 20180111
  2. OTEZLA [Suspect]
     Active Substance: APREMILAST
     Indication: Psoriatic arthropathy
  3. ENBREL [Suspect]
     Active Substance: ETANERCEPT
     Indication: Arthritis
     Route: 065
  4. PROLIA [Suspect]
     Active Substance: DENOSUMAB
     Indication: Product used for unknown indication
     Route: 065
  5. LOSARTAN [Concomitant]
     Active Substance: LOSARTAN
     Indication: Blood pressure measurement
  6. METFORMIN [Concomitant]
     Active Substance: METFORMIN HYDROCHLORIDE
  7. GLIPIZIDE [Concomitant]
     Active Substance: GLIPIZIDE
  8. COSENTYX [Concomitant]
     Active Substance: SECUKINUMAB
     Indication: Psoriasis
  9. ANASTROZOLE [Concomitant]
     Active Substance: ANASTROZOLE

REACTIONS (5)
  - Drug ineffective [Unknown]
  - Therapeutic response unexpected [Unknown]
  - Diarrhoea [Unknown]
  - Decreased appetite [Unknown]
  - Weight decreased [Unknown]
